FAERS Safety Report 5514804-5 (Version None)
Quarter: 2007Q4

REPORT INFORMATION
  Report Type: 
  Country: None (occurrence: None)
  Receive Date: 20071109
  Receipt Date: 20071031
  Transmission Date: 20080405
  Serious: Yes (Life-Threatening)
  Sender: FDA-Public Use
  Company Number: JPI-P-002401

PATIENT
  Age: 41 Year
  Sex: Male

DRUGS (2)
  1. XYREM [Suspect]
     Indication: INSOMNIA
     Dosage: 6 GM (3 GM, 2 IN 1 D), ORAL
     Route: 048
     Dates: start: 20071026, end: 20071028
  2. XYREM [Suspect]
     Indication: SOMNOLENCE
     Dosage: 6 GM (3 GM, 2 IN 1 D), ORAL
     Route: 048
     Dates: start: 20071026, end: 20071028

REACTIONS (7)
  - DELIRIUM [None]
  - FEELING ABNORMAL [None]
  - HAEMORRHAGE [None]
  - HALLUCINATION [None]
  - INTENTIONAL SELF-INJURY [None]
  - LACERATION [None]
  - UNDERDOSE [None]
